FAERS Safety Report 23336110 (Version 2)
Quarter: 2024Q1

REPORT INFORMATION
  Report Type: Report from Study
  Country: ES (occurrence: ES)
  Receive Date: 20231225
  Receipt Date: 20240118
  Transmission Date: 20240410
  Serious: Yes (Hospitalization)
  Sender: FDA-Public Use
  Company Number: ES-SA-SAC20231223000432

PATIENT
  Age: 65 Year
  Sex: Male
  Weight: 75 kg

DRUGS (12)
  1. ISATUXIMAB [Suspect]
     Active Substance: ISATUXIMAB
     Indication: Plasma cell myeloma
     Dosage: 750 MG
     Route: 041
     Dates: start: 20231108, end: 20231108
  2. ISATUXIMAB [Suspect]
     Active Substance: ISATUXIMAB
     Dosage: 750 MG
     Route: 041
     Dates: start: 20231129, end: 20231129
  3. ISATUXIMAB [Suspect]
     Active Substance: ISATUXIMAB
     Dosage: 750 MG
     Route: 041
     Dates: start: 20231229, end: 20231229
  4. BORTEZOMIB [Suspect]
     Active Substance: BORTEZOMIB
     Indication: Plasma cell myeloma
     Dosage: 2.3 MG
     Route: 058
     Dates: start: 20231108, end: 20231108
  5. BORTEZOMIB [Suspect]
     Active Substance: BORTEZOMIB
     Dosage: 2.3 MG
     Route: 058
     Dates: start: 20231120, end: 20231120
  6. BORTEZOMIB [Suspect]
     Active Substance: BORTEZOMIB
     Dosage: 2.3 MG
     Route: 058
     Dates: start: 20240102, end: 20240102
  7. LENALIDOMIDE [Suspect]
     Active Substance: LENALIDOMIDE
     Indication: Plasma cell myeloma
     Dosage: 25 MG
     Dates: start: 20231108, end: 20231108
  8. LENALIDOMIDE [Suspect]
     Active Substance: LENALIDOMIDE
     Dosage: 25 MG
     Dates: start: 20231128, end: 20231128
  9. LENALIDOMIDE [Suspect]
     Active Substance: LENALIDOMIDE
     Dosage: 25 MG
     Dates: start: 20240104, end: 20240104
  10. DEXAMETHASONE [Suspect]
     Active Substance: DEXAMETHASONE
     Indication: Plasma cell myeloma
     Dosage: 40 MG
     Route: 042
     Dates: start: 20231108, end: 20231108
  11. DEXAMETHASONE [Suspect]
     Active Substance: DEXAMETHASONE
     Dosage: 40 MG
     Route: 042
     Dates: start: 20231119, end: 20231119
  12. DEXAMETHASONE [Suspect]
     Active Substance: DEXAMETHASONE
     Dosage: 40 MG
     Route: 042
     Dates: start: 20240101, end: 20240101

REACTIONS (2)
  - Pyrexia [Recovered/Resolved]
  - Constipation [Recovered/Resolved]

NARRATIVE: CASE EVENT DATE: 20231202
